FAERS Safety Report 4367395-9 (Version None)
Quarter: 2004Q2

REPORT INFORMATION
  Report Type: 
  Country: None (occurrence: None)
  Receive Date: 20040528
  Receipt Date: 20040528
  Transmission Date: 20050107
  Serious: Yes (Life-Threatening, Hospitalization)
  Sender: FDA-Public Use
  Company Number: None

PATIENT
  Age: 53 Year
  Sex: Female
  Weight: 92.5338 kg

DRUGS (2)
  1. HEPARIN [Suspect]
     Indication: DEEP VEIN THROMBOSIS
     Dosage: 3-10 ML/HR IV
     Route: 042
     Dates: start: 20040217, end: 20040302
  2. CISPLATIN [Suspect]
     Indication: GLOTTIS CARCINOMA
     Dosage: 200 MG ONCE IV
     Route: 042
     Dates: start: 20040202, end: 20040203

REACTIONS (1)
  - PLATELET COUNT DECREASED [None]
